FAERS Safety Report 18910547 (Version 1)
Quarter: 2021Q1

REPORT INFORMATION
  Report Type: Spontaneous
  Country: US (occurrence: US)
  Receive Date: 20210218
  Receipt Date: 20210218
  Transmission Date: 20210420
  Serious: No
  Sender: FDA-Public Use
  Company Number: US-TAKEDA-2021TUS008647

PATIENT
  Sex: Female
  Weight: 82 kg

DRUGS (2)
  1. LIALDA [Suspect]
     Active Substance: MESALAMINE
     Indication: COLITIS ULCERATIVE
     Dosage: 1.5 GM PER PILL? TAKES 4 A DAY
     Route: 065
     Dates: start: 2002
  2. CANASA [Concomitant]
     Active Substance: MESALAMINE
     Indication: COLITIS ULCERATIVE
     Dosage: 1000 MILLIGRAM, AS NEEDED
     Route: 054

REACTIONS (2)
  - Product availability issue [Unknown]
  - Weight increased [Unknown]
